FAERS Safety Report 7622162-5 (Version None)
Quarter: 2011Q3

REPORT INFORMATION
  Report Type: 
  Country: None (occurrence: None)
  Receive Date: 20110720
  Receipt Date: 20110427
  Transmission Date: 20111222
  Serious: Yes (Other)
  Sender: FDA-Public Use
  Company Number: US-BAYER-2011-036604

PATIENT

DRUGS (2)
  1. CIPROFLOXACIN HCL [Suspect]
  2. AVELOX [Suspect]

REACTIONS (1)
  - MYASTHENIA GRAVIS [None]
